FAERS Safety Report 5430075-2 (Version None)
Quarter: 2007Q3

REPORT INFORMATION
  Report Type: 
  Country: None (occurrence: None)
  Receive Date: 20070829
  Receipt Date: 20070820
  Transmission Date: 20080115
  Serious: Yes (Hospitalization, Other)
  Sender: FDA-Public Use
  Company Number: US-PFIZER INC-2007069385

PATIENT
  Age: 25 Year
  Sex: Male

DRUGS (5)
  1. ALPRAZOLAM [Suspect]
     Indication: BIPOLAR DISORDER
     Route: 048
  2. ALPRAZOLAM [Suspect]
     Indication: ANXIETY
  3. ALPRAZOLAM [Suspect]
     Indication: ANGER
  4. LITHIUM CARBONATE [Concomitant]
  5. TRAZODONE HCL [Concomitant]

REACTIONS (9)
  - BACTERIAL INFECTION [None]
  - CHROMATOPSIA [None]
  - DEHYDRATION [None]
  - DYSPNOEA [None]
  - GRAND MAL CONVULSION [None]
  - HAEMORRHAGE [None]
  - HEAT STROKE [None]
  - THINKING ABNORMAL [None]
  - VOMITING [None]
